FAERS Safety Report 11284828 (Version 2)
Quarter: 2015Q3

REPORT INFORMATION
  Report Type: Spontaneous
  Country: US (occurrence: US)
  Receive Date: 20150720
  Receipt Date: 20150730
  Transmission Date: 20151125
  Serious: Yes (Death, Hospitalization, Other)
  Sender: FDA-Public Use
  Company Number: US-GLAXOSMITHKLINE-US2015GSK103756

PATIENT
  Sex: Female

DRUGS (2)
  1. MEKINIST [Suspect]
     Active Substance: TRAMETINIB DIMETHYL SULFOXIDE
     Indication: NEOPLASM MALIGNANT
     Dosage: UNK, U
     Route: 065
     Dates: start: 201506
  2. VOTRIENT [Suspect]
     Active Substance: PAZOPANIB HYDROCHLORIDE
     Indication: NEOPLASM MALIGNANT
     Dosage: UNK, U
     Route: 065
     Dates: start: 201506

REACTIONS (7)
  - Renal failure [Fatal]
  - Lung neoplasm malignant [Unknown]
  - Pulmonary oedema [Unknown]
  - Renal disorder [Unknown]
  - Dyspnoea [Unknown]
  - Lung disorder [Unknown]
  - Respiratory failure [Fatal]
